FAERS Safety Report 25707619 (Version 2)
Quarter: 2025Q3

REPORT INFORMATION
  Report Type: Spontaneous
  Country: EU (occurrence: EU)
  Receive Date: 20250820
  Receipt Date: 20250828
  Transmission Date: 20251021
  Serious: Yes (Other)
  Sender: MYLAN
  Company Number: EU-JNJFOC-20250801720

PATIENT
  Sex: Male

DRUGS (4)
  1. ABIRATERONE [Suspect]
     Active Substance: ABIRATERONE
     Indication: Product used for unknown indication
  2. ABIRATERONE [Suspect]
     Active Substance: ABIRATERONE
     Route: 048
  3. ABIRATERONE [Suspect]
     Active Substance: ABIRATERONE
     Route: 048
  4. ABIRATERONE [Suspect]
     Active Substance: ABIRATERONE

REACTIONS (1)
  - Osteoporosis [Unknown]
